FAERS Safety Report 19799010 (Version 3)
Quarter: 2021Q4

REPORT INFORMATION
  Report Type: Spontaneous
  Country: FR (occurrence: FR)
  Receive Date: 20210907
  Receipt Date: 20211007
  Transmission Date: 20220303
  Serious: Yes (Other)
  Sender: FDA-Public Use
  Company Number: FR-BAYER-2021-203111

PATIENT

DRUGS (2)
  1. EYLEA [Suspect]
     Active Substance: AFLIBERCEPT
     Indication: Age-related macular degeneration
     Dosage: RIGHT EYE, THE TOTAL NUMBER OF EYLEA WAS 11 DOSES PRIOR THE EVENT.
     Dates: start: 20200831
  2. EYLEA [Suspect]
     Active Substance: AFLIBERCEPT
     Dosage: LAST DOSE OF EYLEA PRIOR THE EVENT
     Dates: start: 20210709

REACTIONS (1)
  - Amaurosis fugax [Recovered/Resolved]
